FAERS Safety Report 9502812 (Version 2)
Quarter: 2013Q3

REPORT INFORMATION
  Report Type: Spontaneous
  Country: GB (occurrence: GB)
  Receive Date: 20130906
  Receipt Date: 20130906
  Transmission Date: 20140515
  Serious: Yes (Disabling, Congenital Anomaly)
  Sender: FDA-Public Use
  Company Number: GB-JNJFOC-JAUK25505

PATIENT
  Age: 0 Day
  Sex: 0
  Weight: 4.08 kg

DRUGS (1)
  1. MEBENDAZOLE [Suspect]
     Indication: ENTEROBIASIS
     Route: 064

REACTIONS (2)
  - Ear malformation [Recovered/Resolved with Sequelae]
  - Foetal exposure during pregnancy [Recovered/Resolved]
